FAERS Safety Report 18291531 (Version 3)
Quarter: 2022Q3

REPORT INFORMATION
  Report Type: Spontaneous
  Country: US (occurrence: None)
  Receive Date: 20200922
  Receipt Date: 20220815
  Transmission Date: 20221026
  Serious: Yes (Other)
  Sender: FDA-Public Use
  Company Number: US-ROCHE-2680791

PATIENT
  Sex: Male

DRUGS (5)
  1. HEMLIBRA [Suspect]
     Active Substance: EMICIZUMAB-KXWH
     Indication: Factor VIII deficiency
     Dosage: MAINTENANCE DOSE: INJECT DRUG 30 MG (1 ML) SUBCUTANEOUSLY EVERY 7 DAYS AND 60 MG (0.4 ML) EVERY 7 DA
     Route: 058
     Dates: start: 201908
  2. HEMLIBRA [Suspect]
     Active Substance: EMICIZUMAB-KXWH
     Indication: Von Willebrand^s disease
     Dosage: MAINTENANCE DOSE: INJECT DRUG 30 MG (1 ML) SUBCUTANEOUSLY EVERY 7 DAYS AND 60 MG (0.4 ML) EVERY 7 DA
     Route: 058
     Dates: start: 201908
  3. HEMLIBRA [Suspect]
     Active Substance: EMICIZUMAB-KXWH
     Dosage: MAINTENANCE DOSE: INJECT DRUG 30 MG (1 ML) SUBCUTANEOUSLY EVERY 7 DAYS AND 60 MG (0.4 ML) EVERY 7 DA
     Route: 058
     Dates: start: 201908
  4. HEMLIBRA [Suspect]
     Active Substance: EMICIZUMAB-KXWH
     Dosage: 150 MG/ML
     Route: 058
  5. SERTRALINE HYDROCHLORIDE [Concomitant]
     Active Substance: SERTRALINE HYDROCHLORIDE
     Route: 065

REACTIONS (2)
  - Haemarthrosis [Recovered/Resolved]
  - Haemorrhage [Unknown]
